FAERS Safety Report 9721454 (Version 2)
Quarter: 2013Q4

REPORT INFORMATION
  Report Type: Report from Study
  Country: FR (occurrence: FR)
  Receive Date: 20131129
  Receipt Date: 20131207
  Transmission Date: 20140711
  Serious: Yes (Other)
  Sender: FDA-Public Use
  Company Number: FR-AMGEN-FRACT2013083230

PATIENT
  Age: 2 Month
  Sex: Male
  Weight: 4.1 kg

DRUGS (1)
  1. DENOSUMAB [Suspect]
     Indication: PRODUCT USED FOR UNKNOWN INDICATION
     Dosage: 120 MG, Q4WK
     Route: 064
     Dates: start: 20110929

REACTIONS (1)
  - Ear disorder [Unknown]
